FAERS Safety Report 21664177 (Version 2)
Quarter: 2023Q1

REPORT INFORMATION
  Report Type: Report from Study
  Country: US (occurrence: US)
  Receive Date: 20221130
  Receipt Date: 20230130
  Transmission Date: 20230417
  Serious: Yes (Hospitalization)
  Sender: FDA-Public Use
  Company Number: US-ABBVIE-4167996

PATIENT
  Age: 52 Year
  Sex: Female
  Weight: 65.77 kg

DRUGS (5)
  1. HUMIRA [Suspect]
     Active Substance: ADALIMUMAB
     Indication: Colitis ulcerative
     Route: 058
  2. LIPITOR [Concomitant]
     Active Substance: ATORVASTATIN CALCIUM
     Indication: Product used for unknown indication
  3. MODERNA COVID-19 VACCINE [Concomitant]
     Active Substance: ELASOMERAN
     Indication: COVID-19 immunisation
     Dosage: FREQUENCY: ONE IN ONCE?1ST DOSE
     Route: 030
     Dates: start: 20210323, end: 20210323
  4. MODERNA COVID-19 VACCINE [Concomitant]
     Active Substance: ELASOMERAN
     Indication: COVID-19 immunisation
     Dosage: FREQUENCY: ONE IN ONCE?2ND DOSE
     Route: 030
     Dates: start: 20210420, end: 20210420
  5. MODERNA COVID-19 VACCINE [Concomitant]
     Active Substance: ELASOMERAN
     Indication: COVID-19 immunisation
     Dosage: FREQUENCY: ONE IN ONCE?BOOSTER DOSE
     Route: 030
     Dates: start: 20210817, end: 20210817

REACTIONS (4)
  - Pneumonia [Recovered/Resolved]
  - Injection site pain [Unknown]
  - Incorrect dose administered [Unknown]
  - Pneumonia legionella [Recovered/Resolved]

NARRATIVE: CASE EVENT DATE: 20220901
